FAERS Safety Report 13067331 (Version 1)
Quarter: 2016Q4

REPORT INFORMATION
  Report Type: Spontaneous
  Country: FR (occurrence: FR)
  Receive Date: 20161228
  Receipt Date: 20161228
  Transmission Date: 20170207
  Serious: Yes (Hospitalization, Other)
  Sender: FDA-Public Use
  Company Number: FR-BAXTER-2016BAX063997

PATIENT
  Age: 48 Year
  Sex: Female

DRUGS (14)
  1. ARACYTINE [Suspect]
     Active Substance: CYTARABINE
     Indication: ACUTE MYELOID LEUKAEMIA
     Route: 042
     Dates: start: 20160929, end: 20161002
  2. CYTARABINE. [Suspect]
     Active Substance: CYTARABINE
     Indication: ACUTE MYELOID LEUKAEMIA
     Dosage: BIG1 PROTOCOL
     Route: 065
     Dates: start: 20160402
  3. CYCLOSPORINE. [Suspect]
     Active Substance: CYCLOSPORINE
     Indication: PROPHYLAXIS
     Route: 065
  4. CERUBIDINE [Suspect]
     Active Substance: DAUNORUBICIN HYDROCHLORIDE
     Indication: ACUTE MYELOID LEUKAEMIA
     Dosage: MYLOFRANCE PROTOCOL
     Route: 065
     Dates: start: 20160609
  5. GEMTUZUMAB OZOGAMICIN [Suspect]
     Active Substance: GEMTUZUMAB OZOGAMICIN
     Indication: ACUTE MYELOID LEUKAEMIA
     Dosage: MYLOFRANCE PROTOCOL
     Route: 065
     Dates: start: 20160609
  6. CYTARABINE. [Suspect]
     Active Substance: CYTARABINE
     Dosage: MYLOFRANCE PROTOCOL
     Route: 065
     Dates: start: 20160609
  7. G-CSF [Suspect]
     Active Substance: GRANULOCYTE COLONY-STIMULATING FACTOR NOS
     Indication: PRODUCT USED FOR UNKNOWN INDICATION
     Route: 065
     Dates: start: 20160929, end: 20161002
  8. BUSILVEX [Suspect]
     Active Substance: BUSULFAN
     Indication: ACUTE MYELOID LEUKAEMIA
     Dosage: ONE SINGLE INTAKE
     Route: 042
     Dates: start: 20161007, end: 20161007
  9. MYCOPHENOLATE MOFETIL. [Suspect]
     Active Substance: MYCOPHENOLATE MOFETIL
     Indication: PROPHYLAXIS
     Route: 065
  10. ENDOXAN 1000 MG, POUDRE POUR SOLUTION INJECTABLE [Suspect]
     Active Substance: CYCLOPHOSPHAMIDE
     Indication: ACUTE MYELOID LEUKAEMIA
     Dosage: SINGLE INTAKE
     Route: 042
     Dates: start: 20161006, end: 20161006
  11. CYTARABINE. [Suspect]
     Active Substance: CYTARABINE
     Dosage: ALFA 07 02
     Route: 065
     Dates: start: 20160909
  12. FLUDARABINE [Suspect]
     Active Substance: FLUDARABINE PHOSPHATE
     Indication: ACUTE MYELOID LEUKAEMIA
     Route: 042
     Dates: start: 20160929, end: 20161002
  13. AMSALYO [Suspect]
     Active Substance: AMSACRINE
     Indication: ACUTE MYELOID LEUKAEMIA
     Route: 042
     Dates: start: 20160929, end: 20161002
  14. CLOFARABINE [Suspect]
     Active Substance: CLOFARABINE
     Indication: ACUTE MYELOID LEUKAEMIA
     Dosage: ALFA 07 02
     Route: 065
     Dates: start: 20160909

REACTIONS (11)
  - Mitral valve incompetence [Unknown]
  - Aortic valve incompetence [Unknown]
  - Neuromyopathy [Unknown]
  - Burkholderia cepacia complex infection [Recovered/Resolved with Sequelae]
  - Pneumonia [Recovered/Resolved with Sequelae]
  - Left ventricular failure [Recovered/Resolved]
  - Sepsis [Unknown]
  - Pericardial effusion [Unknown]
  - Staphylococcal bacteraemia [Recovered/Resolved]
  - Cardiomyopathy [Unknown]
  - Human herpesvirus 6 infection [Unknown]

NARRATIVE: CASE EVENT DATE: 20161006
